FAERS Safety Report 25956189 (Version 1)
Quarter: 2025Q4

REPORT INFORMATION
  Report Type: Spontaneous
  Country: US (occurrence: US)
  Receive Date: 20251024
  Receipt Date: 20251024
  Transmission Date: 20260118
  Serious: Yes (Other)
  Sender: MYLAN
  Company Number: US-MYLANLABS-2025M1089924

PATIENT
  Age: 25 Year
  Sex: Male

DRUGS (2)
  1. DOXYCYCLINE [Suspect]
     Active Substance: DOXYCYCLINE
     Indication: Confluent and reticulate papillomatosis
     Dosage: 100 MILLIGRAM, BID
  2. DOXYCYCLINE [Suspect]
     Active Substance: DOXYCYCLINE
     Dosage: UNK, THERAPY COMPLETED

REACTIONS (2)
  - Abdominal discomfort [Unknown]
  - Off label use [Unknown]
